FAERS Safety Report 23391546 (Version 1)
Quarter: 2024Q1

REPORT INFORMATION
  Report Type: Spontaneous
  Country: IN (occurrence: IN)
  Receive Date: 20240111
  Receipt Date: 20240111
  Transmission Date: 20240410
  Serious: Yes (Hospitalization)
  Sender: FDA-Public Use
  Company Number: IN-MYLANLABS-2024M1003330

PATIENT
  Age: 29 Year
  Sex: Male

DRUGS (1)
  1. TRAMADOL [Suspect]
     Active Substance: TRAMADOL\TRAMADOL HYDROCHLORIDE
     Indication: Back pain
     Dosage: 37.5 MILLIGRAM, BID, FOR FIVE DAYS
     Route: 048

REACTIONS (3)
  - Rash morbilliform [Recovering/Resolving]
  - Generalised tonic-clonic seizure [Recovering/Resolving]
  - Atrial fibrillation [Recovering/Resolving]
